FAERS Safety Report 8216223-X (Version None)
Quarter: 2012Q1

REPORT INFORMATION
  Report Type: 
  Country: None (occurrence: None)
  Receive Date: 20120316
  Receipt Date: 20120309
  Transmission Date: 20120608
  Serious: Yes (Hospitalization)
  Sender: FDA-Public Use
  Company Number: JP-GLAXOSMITHKLINE-B0788810A

PATIENT
  Age: 68 Year
  Sex: Female

DRUGS (1)
  1. HYCAMTIN [Suspect]
     Indication: OVARIAN CANCER
     Dosage: .75MG PER DAY
     Route: 042
     Dates: start: 20120220, end: 20120224

REACTIONS (2)
  - OEDEMA PERIPHERAL [None]
  - OEDEMA [None]
